FAERS Safety Report 14674659 (Version 1)
Quarter: 2018Q1

REPORT INFORMATION
  Report Type: Spontaneous
  Country: CA (occurrence: CA)
  Receive Date: 20180323
  Receipt Date: 20180323
  Transmission Date: 20180509
  Serious: Yes (Disabling)
  Sender: FDA-Public Use
  Company Number: CA-BAYER-2018-051799

PATIENT
  Age: 50 Year
  Sex: Female
  Weight: 100 kg

DRUGS (2)
  1. MIRENA [Suspect]
     Active Substance: LEVONORGESTREL
     Indication: CONTRACEPTION
     Dosage: 20 MCG/24HR, CONT
     Route: 015
  2. MIRENA [Suspect]
     Active Substance: LEVONORGESTREL
     Indication: CONTRACEPTION

REACTIONS (30)
  - Hair texture abnormal [Unknown]
  - Hypoaesthesia [Unknown]
  - Insomnia [Unknown]
  - Pain of skin [Unknown]
  - Tachycardia [Unknown]
  - Weight increased [Unknown]
  - Dysgraphia [Unknown]
  - Dyslexia [Unknown]
  - Urinary incontinence [Unknown]
  - Alopecia [Unknown]
  - Fatigue [Unknown]
  - Menstruation irregular [Unknown]
  - Seborrhoea [Unknown]
  - Dry eye [Unknown]
  - Vision blurred [Unknown]
  - Arthralgia [Unknown]
  - Gastrointestinal disorder [Unknown]
  - Hyperhidrosis [Unknown]
  - Tremor [Unknown]
  - Metrorrhagia [Unknown]
  - Amnesia [Unknown]
  - Disturbance in attention [Unknown]
  - Night sweats [Unknown]
  - Visual impairment [Unknown]
  - Apathy [Unknown]
  - Breast pain [Unknown]
  - Muscle spasms [Unknown]
  - Abdominal pain lower [Unknown]
  - Back pain [Unknown]
  - Blood pressure increased [Unknown]
